FAERS Safety Report 8037981-3 (Version None)
Quarter: 2012Q1

REPORT INFORMATION
  Report Type: 
  Country: None (occurrence: None)
  Receive Date: 20120111
  Receipt Date: 20120105
  Transmission Date: 20120608
  Serious: Yes (Life-Threatening)
  Sender: FDA-Public Use
  Company Number: FR-PFIZER INC-2012002810

PATIENT
  Age: 62 Year
  Sex: Male

DRUGS (6)
  1. LEVOTHYROXINE SODIUM [Concomitant]
     Dosage: UNK
  2. AMLODIPINE/VALSARTAN [Concomitant]
     Dosage: UNK
  3. METHOTREXATE SODIUM [Suspect]
     Dosage: UNK
     Dates: start: 20110705, end: 20110705
  4. NEXIUM [Concomitant]
     Dosage: UNK
  5. CORTICOSTEROID NOS [Concomitant]
     Dosage: UNK
  6. CYTARABINE [Suspect]
     Dosage: UNK
     Dates: start: 20110706, end: 20110706

REACTIONS (1)
  - SEPTIC SHOCK [None]
